FAERS Safety Report 5262234-6 (Version None)
Quarter: 2007Q1

REPORT INFORMATION
  Report Type: 
  Country: None (occurrence: None)
  Receive Date: 20070308
  Receipt Date: 20070308
  Transmission Date: 20070707
  Serious: Yes (Other)
  Sender: FDA-Public Use
  Company Number: None

PATIENT
  Age: 62 Year
  Sex: Female
  Weight: 63.5036 kg

DRUGS (1)
  1. GENERIC CLIMARA [Suspect]
     Indication: HORMONE REPLACEMENT THERAPY
     Dosage: 0.1 MG WKLY
     Route: 062

REACTIONS (1)
  - SKIN IRRITATION [None]
